FAERS Safety Report 12100975 (Version 1)
Quarter: 2016Q1

REPORT INFORMATION
  Report Type: Spontaneous
  Country: US (occurrence: US)
  Receive Date: 20160222
  Receipt Date: 20160222
  Transmission Date: 20160526
  Serious: Yes (Hospitalization)
  Sender: FDA-Public Use
  Company Number: US-IPCA LABORATORIES LIMITED-IPC201602-000226

PATIENT
  Sex: Male

DRUGS (16)
  1. MIDAZOLAM [Concomitant]
     Active Substance: MIDAZOLAM\MIDAZOLAM HYDROCHLORIDE
  2. HYDROMORPHONE [Concomitant]
     Active Substance: HYDROMORPHONE
  3. NEOSTIGMINE [Concomitant]
     Active Substance: NEOSTIGMINE
  4. FENTANYL. [Suspect]
     Active Substance: FENTANYL
     Route: 042
  5. ONDANSETRON [Suspect]
     Active Substance: ONDANSETRON
     Route: 042
  6. ERTAPENEM [Concomitant]
     Active Substance: ERTAPENEM
  7. METHYLTHIONINIUM CHLORIDE [Suspect]
     Active Substance: METHYLENE BLUE
     Route: 042
  8. METRONIDAZOLE. [Suspect]
     Active Substance: METRONIDAZOLE
     Route: 042
  9. MIDAZOLAM [Concomitant]
     Active Substance: MIDAZOLAM\MIDAZOLAM HYDROCHLORIDE
  10. SEVOFLURANE. [Concomitant]
     Active Substance: SEVOFLURANE
  11. CISATRACURIUM. [Concomitant]
     Active Substance: CISATRACURIUM
  12. FLUOXETINE [Suspect]
     Active Substance: FLUOXETINE HYDROCHLORIDE
     Indication: DEPRESSION
  13. CEFAZOLIN [Concomitant]
     Active Substance: CEFAZOLIN
  14. GLYCOPYRROLATE. [Concomitant]
     Active Substance: GLYCOPYRROLATE
  15. METOCLOPRAMIDE HYDROCHLORIDE. [Suspect]
     Active Substance: METOCLOPRAMIDE HYDROCHLORIDE
     Route: 042
  16. FENTANYL. [Suspect]
     Active Substance: FENTANYL

REACTIONS (2)
  - Drug interaction [Unknown]
  - Serotonin syndrome [Recovered/Resolved]
